FAERS Safety Report 7647276-5 (Version None)
Quarter: 2011Q3

REPORT INFORMATION
  Report Type: 
  Country: None (occurrence: None)
  Receive Date: 20110801
  Receipt Date: 20110720
  Transmission Date: 20111222
  Serious: Yes (Hospitalization)
  Sender: FDA-Public Use
  Company Number: US-ROCHE-775540

PATIENT
  Sex: Male
  Weight: 67 kg

DRUGS (12)
  1. PEMETREXED [Suspect]
     Indication: NON-SMALL CELL LUNG CANCER STAGE IV
     Route: 042
     Dates: start: 20100126
  2. NORVASC [Concomitant]
     Dates: start: 20100414
  3. COREG [Concomitant]
     Dates: start: 20070902
  4. COLCHICINE [Concomitant]
     Dates: start: 20090721
  5. DIGOXIN [Concomitant]
     Dates: start: 20090902
  6. FOLIC ACID [Concomitant]
     Dates: start: 20100112
  7. BEVACIZUMAB [Suspect]
     Indication: NON-SMALL CELL LUNG CANCER STAGE IV
     Dosage: DAY 1 EVERY 21 DAYS
     Route: 042
     Dates: start: 20100126, end: 20100406
  8. PEMETREXED [Suspect]
     Dosage: DAY 1 EVERY 21 DAYS
     Route: 042
     Dates: start: 20100505
  9. VITAMIN B-12 [Concomitant]
     Dates: start: 20100112
  10. BEVACIZUMAB [Suspect]
     Route: 042
     Dates: start: 20100505, end: 20110425
  11. CARBOPLATIN [Suspect]
     Indication: NON-SMALL CELL LUNG CANCER STAGE IV
     Dosage: DAY 1 EVERY 21 DAYS
     Route: 042
     Dates: start: 20100126
  12. PEPCID [Concomitant]
     Dates: start: 20100126

REACTIONS (3)
  - HYPOTHERMIA [None]
  - CEREBROVASCULAR ACCIDENT [None]
  - DIARRHOEA [None]
